FAERS Safety Report 6528860-9 (Version None)
Quarter: 2010Q1

REPORT INFORMATION
  Report Type: 
  Country: None (occurrence: None)
  Receive Date: 20100106
  Receipt Date: 20091228
  Transmission Date: 20100710
  Serious: Yes (Death, Hospitalization)
  Sender: FDA-Public Use
  Company Number: FR-B.I. PHARMACEUTICALS,INC./RIDGEFIELD-2010-BP-00103YA

PATIENT
  Sex: Male

DRUGS (14)
  1. TAMSULOSIN HCL [Suspect]
     Route: 048
     Dates: start: 20091019, end: 20091027
  2. RIFADINE (REFAMPICIN SODIUM) [Suspect]
     Route: 048
     Dates: start: 20091010, end: 20091028
  3. PYOSTACINE (PRISTINAMYCIN) [Suspect]
     Route: 048
     Dates: start: 20091019, end: 20091029
  4. PREVISCAN (FLUINDIONE) [Concomitant]
  5. BISOPROLOL FUMARATE [Concomitant]
  6. FUROSEMIDE (FUROSEMIDE SODIUM) [Concomitant]
  7. DIGOXIN [Concomitant]
  8. VALSARTAN [Concomitant]
  9. IKOREL (NICORANDIL) [Concomitant]
  10. POTASSIUM CHLORIDE [Concomitant]
  11. BROMAZEPAM (BROMAZEPAM) [Concomitant]
  12. LANSOPRAZOLE [Concomitant]
  13. TRINITRIN (GLYCERYL TRINITRATE) [Concomitant]
  14. ART (DIACEREIN) [Concomitant]

REACTIONS (2)
  - SEPTIC SHOCK [None]
  - THROMBOCYTOPENIA [None]
